FAERS Safety Report 20759075 (Version 1)
Quarter: 2022Q2

REPORT INFORMATION
  Report Type: Spontaneous
  Country: US (occurrence: US)
  Receive Date: 20220427
  Receipt Date: 20220427
  Transmission Date: 20220721
  Serious: No
  Sender: FDA-Public Use
  Company Number: US-BioHaven Pharmaceuticals-2021BHV003144

PATIENT
  Age: 42 Year
  Sex: Female

DRUGS (1)
  1. NURTEC ODT [Suspect]
     Active Substance: RIMEGEPANT SULFATE
     Indication: Product used for unknown indication
     Dosage: TOOK THE SAMPLE TWO MONTHS AGO
     Route: 065
     Dates: start: 2021, end: 2021

REACTIONS (3)
  - Abdominal discomfort [Unknown]
  - Gastrooesophageal reflux disease [Recovered/Resolved]
  - Discomfort [Unknown]
